FAERS Safety Report 5248068-7 (Version None)
Quarter: 2007Q1

REPORT INFORMATION
  Report Type: 
  Country: None (occurrence: None)
  Receive Date: 20070222
  Receipt Date: 20070205
  Transmission Date: 20070707
  Serious: Yes (Other)
  Sender: FDA-Public Use
  Company Number: 2007000235

PATIENT
  Age: 44 Year
  Sex: Female

DRUGS (1)
  1. TARCEVA [Suspect]
     Indication: NON-SMALL CELL LUNG CANCER
     Dosage: 150 MG (QD), ORAL
     Route: 048
     Dates: start: 20060615

REACTIONS (7)
  - CYTOLYTIC HEPATITIS [None]
  - DIARRHOEA [None]
  - OESOPHAGITIS [None]
  - PURULENCE [None]
  - RASH [None]
  - STAPHYLOCOCCAL INFECTION [None]
  - STOMACH DISCOMFORT [None]
